FAERS Safety Report 6436855-9 (Version None)
Quarter: 2009Q4

REPORT INFORMATION
  Report Type: 
  Country: None (occurrence: None)
  Receive Date: 20091111
  Receipt Date: 20091005
  Transmission Date: 20100525
  Serious: No
  Sender: FDA-Public Use
  Company Number: US-ALLERGAN-0913791US

PATIENT
  Age: 87 Year
  Sex: Female

DRUGS (2)
  1. SANCTURA XR [Suspect]
     Indication: HYPERTONIC BLADDER
     Dosage: UNK
     Route: 048
  2. LIPITOR [Concomitant]

REACTIONS (2)
  - RASH ERYTHEMATOUS [None]
  - URTICARIA [None]
